FAERS Safety Report 11051242 (Version 1)
Quarter: 2015Q2

REPORT INFORMATION
  Report Type: Spontaneous
  Country: US (occurrence: None)
  Receive Date: 20150420
  Receipt Date: 20150420
  Transmission Date: 20150821
  Serious: No
  Sender: FDA-Public Use
  Company Number: None

PATIENT
  Age: 37 Year
  Sex: Female

DRUGS (1)
  1. HUMIRA [Suspect]
     Active Substance: ADALIMUMAB
     Indication: RHEUMATOID ARTHRITIS
     Dosage: 40 MG ONE PEN EVERY OTHER SUBCUTANEOUSLY?
     Route: 058
     Dates: start: 20140627, end: 20141215

REACTIONS (1)
  - Urticaria [None]

NARRATIVE: CASE EVENT DATE: 20141215
